FAERS Safety Report 23539594 (Version 1)
Quarter: 2024Q1

REPORT INFORMATION
  Report Type: Spontaneous
  Country: US (occurrence: US)
  Receive Date: 20240219
  Receipt Date: 20240219
  Transmission Date: 20240410
  Serious: No
  Sender: FDA-Public Use
  Company Number: US-CTI BIOPHARMA-2024US04464

PATIENT

DRUGS (9)
  1. VONJO [Suspect]
     Active Substance: PACRITINIB
     Indication: Essential thrombocythaemia
     Dosage: 100 MG, BID
     Route: 048
     Dates: start: 20240115
  2. NADOLOL [Concomitant]
     Active Substance: NADOLOL
     Dosage: 20 MG
  3. MELATONIN [Concomitant]
     Active Substance: MELATONIN
     Dosage: 10 MG
  4. GABAPENTIN [Concomitant]
     Active Substance: GABAPENTIN
     Dosage: 300 MG
  5. FLUTICASONE [Concomitant]
     Active Substance: FLUTICASONE
     Route: 045
  6. ZOLPIDEM [Concomitant]
     Active Substance: ZOLPIDEM TARTRATE
     Dosage: 10 MG
  7. CETIRIZINE HYDROCHLORIDE [Concomitant]
     Active Substance: CETIRIZINE HYDROCHLORIDE
     Dosage: 10 MG
  8. OMEPRAZOLE [Concomitant]
     Active Substance: OMEPRAZOLE
     Dosage: 20 MG
  9. ASPIRIN [Concomitant]
     Active Substance: ASPIRIN
     Dosage: 81 MG

REACTIONS (3)
  - Arthralgia [Recovered/Resolved]
  - Cold sweat [Recovered/Resolved]
  - Abdominal discomfort [Unknown]
